FAERS Safety Report 20692749 (Version 1)
Quarter: 2022Q2

REPORT INFORMATION
  Report Type: Spontaneous
  Country: TR (occurrence: TR)
  Receive Date: 20220409
  Receipt Date: 20220409
  Transmission Date: 20220721
  Serious: Yes (Other)
  Sender: FDA-Public Use
  Company Number: TR-NOVARTISPH-NVSC2022TR073905

PATIENT
  Age: 78 Year
  Sex: Female

DRUGS (2)
  1. EXELON [Suspect]
     Active Substance: RIVASTIGMINE TARTRATE
     Indication: Dementia Alzheimer^s type
     Dosage: 9.5 MG, QD (PATCH 10CM2, 18 MG RIVASTIGMINE BASE)
     Route: 065
  2. EXELON [Suspect]
     Active Substance: RIVASTIGMINE TARTRATE
     Dosage: 13.3 MG, QD (PATCH 15 CM2, 27 MG RIVASTIGMINE BASE)
     Route: 065
     Dates: start: 20220326

REACTIONS (7)
  - Memory impairment [Unknown]
  - Dementia Alzheimer^s type [Unknown]
  - Behaviour disorder [Unknown]
  - Aggression [Unknown]
  - Hypotension [Unknown]
  - Product supply issue [Unknown]
  - Drug ineffective [Unknown]

NARRATIVE: CASE EVENT DATE: 20220329
